FAERS Safety Report 9519995 (Version 4)
Quarter: 2014Q1

REPORT INFORMATION
  Report Type: Spontaneous
  Country: US (occurrence: US)
  Receive Date: 20130912
  Receipt Date: 20140305
  Transmission Date: 20141002
  Serious: Yes (Other)
  Sender: FDA-Public Use
  Company Number: US-MERCK-1309USA004694

PATIENT
  Sex: Male
  Weight: 121.54 kg

DRUGS (6)
  1. JANUVIA [Suspect]
     Indication: TYPE 2 DIABETES MELLITUS
     Dosage: 100 MG, QD
     Route: 048
     Dates: start: 20080609, end: 20130505
  2. JANUVIA [Suspect]
     Dosage: 2 TABLETS IN AM AND 2 TABLETS IN PM
     Route: 048
     Dates: start: 20080609, end: 20130505
  3. LOTREL [Concomitant]
     Indication: HYPERTENSION
     Dosage: 10/20 QD
     Dates: start: 20040227
  4. LISINOPRIL [Concomitant]
     Indication: HYPERTENSION
     Dosage: UNK
     Dates: start: 19980109
  5. GLYBURIDE [Concomitant]
     Indication: TYPE 2 DIABETES MELLITUS
     Dosage: 10 MG, BID
     Dates: start: 19970819
  6. GLIPIZIDE [Concomitant]
     Indication: TYPE 2 DIABETES MELLITUS

REACTIONS (21)
  - Pancreatic carcinoma [Unknown]
  - Signet-ring cell carcinoma [Unknown]
  - Inappropriate schedule of drug administration [Unknown]
  - Urinary tract infection [Unknown]
  - Joint stiffness [Unknown]
  - Fall [Unknown]
  - Oedema [Unknown]
  - Lipoma [Unknown]
  - Diabetic complication [Unknown]
  - Cholelithiasis [Unknown]
  - Hypercholesterolaemia [Unknown]
  - Radiotherapy [Unknown]
  - Benign prostatic hyperplasia [Unknown]
  - Cardiac murmur [Unknown]
  - Neoplasm skin [Unknown]
  - Chronic obstructive pulmonary disease [Unknown]
  - Fatigue [Unknown]
  - Arthralgia [Unknown]
  - Arthralgia [Unknown]
  - Constipation [Unknown]
  - Diarrhoea [Unknown]
